FAERS Safety Report 4635641-X (Version None)
Quarter: 2005Q2

REPORT INFORMATION
  Report Type: 
  Country: None (occurrence: None)
  Receive Date: 20050414
  Receipt Date: 20050308
  Transmission Date: 20051028
  Serious: Yes (Hospitalization)
  Sender: FDA-Public Use
  Company Number: US-MERCK-0503USA01169

PATIENT
  Age: 45 Year
  Sex: Female

DRUGS (2)
  1. MAXALT [Suspect]
     Indication: MIGRAINE
     Route: 048
  2. ZOLOFT [Concomitant]
     Route: 065

REACTIONS (7)
  - BLOOD TESTOSTERONE INCREASED [None]
  - CONDITION AGGRAVATED [None]
  - DEHYDROEPIANDROSTERONE INCREASED [None]
  - HOT FLUSH [None]
  - HYSTERECTOMY [None]
  - MIGRAINE [None]
  - UTERINE DISORDER [None]
